FAERS Safety Report 8611141-7 (Version None)
Quarter: 2012Q3

REPORT INFORMATION
  Report Type: 
  Country: None (occurrence: None)
  Receive Date: 20120822
  Receipt Date: 20120820
  Transmission Date: 20120928
  Serious: Yes (Other)
  Sender: FDA-Public Use
  Company Number: US-PFIZER INC-2012204326

PATIENT
  Age: 51 Year
  Sex: Female
  Weight: 77.098 kg

DRUGS (21)
  1. MORPHINE [Concomitant]
     Dosage: 30 MG, UNK
  2. TRIAZOLAM [Concomitant]
     Dosage: UNK, 2X/DAY
  3. COPAXONE [Concomitant]
     Indication: MULTIPLE SCLEROSIS
     Dosage: UNK, 1X/DAY
  4. CARAFATE [Concomitant]
     Dosage: UNK (TWO TEASPOONFUL), 2X/DAY
  5. FUROSEMIDE [Concomitant]
     Dosage: 40 MG, 1X/DAY
  6. ONDANSETRON [Concomitant]
     Dosage: 8 MG, 2X/DAY
  7. CREON 12000 [Concomitant]
     Dosage: 1 DF, 2X/DAY
  8. ZOLOFT [Concomitant]
     Indication: DEPRESSION
     Dosage: 50 MG, 1X/DAY
     Route: 048
  9. HALCION [Suspect]
     Indication: SLEEP DISORDER
     Dosage: 0.25 MG, 1X/DAY
     Route: 048
     Dates: start: 20060101
  10. NAPROXEN [Concomitant]
     Dosage: 500 MG, 2X/DAY
  11. NUVIGIL [Concomitant]
     Dosage: 250 MG, 1X/DAY
  12. FLUTICASONE PROPIONATE/SALMETEROL [Concomitant]
     Dosage: 100/50 UG, 2X/DAY
  13. CYMBALTA [Suspect]
     Indication: DEPRESSION
     Dosage: 60 MG, 2X/DAY
     Route: 048
     Dates: start: 20080101, end: 20120101
  14. HYDROCODONE BITARTRATE + ACETAMINOPHEN [Concomitant]
     Dosage: 20/650 MG, 2X/DAY
  15. LEVOTHYROXINE [Concomitant]
     Dosage: 112 UG, 1X/DAY
  16. LISINOPRIL [Concomitant]
     Indication: HYPERTENSION
     Dosage: 20 MG, 2X/DAY
  17. METHOCARBAMOL [Concomitant]
     Dosage: 500 MG, 3X/DAY
  18. VENTOLIN [Concomitant]
     Dosage: 90 UG, AS NEEDED
  19. LYRICA [Concomitant]
     Indication: FIBROMYALGIA
     Dosage: UNK
     Dates: start: 20080101
  20. NEXIUM [Concomitant]
     Dosage: 40 MG, 2X/DAY
  21. XANAX [Concomitant]
     Indication: ANXIETY
     Dosage: 1 MG, 3X/DAY

REACTIONS (3)
  - URINARY TRACT INFECTION [None]
  - WEIGHT DECREASED [None]
  - BLOOD POTASSIUM DECREASED [None]
